FAERS Safety Report 25111777 (Version 1)
Quarter: 2025Q1

REPORT INFORMATION
  Report Type: Spontaneous
  Country: RO (occurrence: RO)
  Receive Date: 20250324
  Receipt Date: 20250324
  Transmission Date: 20250409
  Serious: Yes (Death)
  Sender: NOVARTIS
  Company Number: RO-002147023-NVSC2025RO048135

PATIENT
  Age: 70 Year
  Sex: Female

DRUGS (2)
  1. TAFINLAR [Suspect]
     Active Substance: DABRAFENIB MESYLATE
     Indication: Malignant melanoma stage IV
     Dosage: UNK UNK, BID (2 X 75 MG)
     Route: 065
     Dates: start: 201807
  2. MEKINIST [Suspect]
     Active Substance: TRAMETINIB DIMETHYL SULFOXIDE
     Indication: Malignant melanoma stage IV
     Dosage: 2 MG, QD
     Route: 065
     Dates: start: 201807

REACTIONS (6)
  - Influenza [Fatal]
  - Pneumonia [Fatal]
  - Asthenia [Unknown]
  - Pyrexia [Unknown]
  - Decreased appetite [Unknown]
  - Abdominal pain upper [Unknown]

NARRATIVE: CASE EVENT DATE: 20181001
